FAERS Safety Report 21089592 (Version 1)
Quarter: 2022Q3

REPORT INFORMATION
  Report Type: Spontaneous
  Country: AU (occurrence: AU)
  Receive Date: 20220715
  Receipt Date: 20220715
  Transmission Date: 20221027
  Serious: Yes (Hospitalization)
  Sender: FDA-Public Use
  Company Number: AU-CELGENE-AUS-20210908122

PATIENT
  Age: 67 Year
  Sex: Female
  Weight: 75 kg

DRUGS (37)
  1. AZACITIDINE [Suspect]
     Active Substance: AZACITIDINE
     Indication: Myelodysplastic syndrome
     Dosage: 1 IN 1 D
     Route: 058
     Dates: start: 20210802, end: 20210907
  2. AZACITIDINE [Suspect]
     Active Substance: AZACITIDINE
  3. VENETOCLAX [Suspect]
     Active Substance: VENETOCLAX
     Indication: Myelodysplastic syndrome
     Dosage: 400 MILLIGRAM
     Route: 048
     Dates: start: 20210802, end: 20210815
  4. VENETOCLAX [Suspect]
     Active Substance: VENETOCLAX
     Dosage: 200 MILLIGRAM
     Route: 048
     Dates: start: 20210830
  5. DULOXETINE [Concomitant]
     Active Substance: DULOXETINE
     Indication: Anxiety
     Route: 048
  6. DULOXETINE [Concomitant]
     Active Substance: DULOXETINE
     Indication: Depression
     Route: 048
     Dates: start: 20200101
  7. ESOMEPRAZOLE [Concomitant]
     Active Substance: ESOMEPRAZOLE
     Indication: Hiatus hernia
     Route: 048
  8. ESOMEPRAZOLE [Concomitant]
     Active Substance: ESOMEPRAZOLE
     Indication: Nausea
  9. ATENIX [ATENOLOL] [Concomitant]
     Indication: Hypertension
     Dosage: 1 IN 1 D
     Route: 048
  10. ATENIX [ATENOLOL] [Concomitant]
     Indication: Nausea
     Route: 048
     Dates: start: 20190101
  11. EZETIMIBE [Concomitant]
     Active Substance: EZETIMIBE
     Indication: Hypercholesterolaemia
     Dosage: 1 IN 1 D
     Route: 048
  12. EZETIMIBE [Concomitant]
     Active Substance: EZETIMIBE
     Indication: Nausea
     Route: 048
     Dates: start: 20150101
  13. PANADOL [Concomitant]
     Active Substance: ACETAMINOPHEN
     Indication: Arthralgia
     Dosage: 1 AS REQUIRED
     Route: 048
  14. PANADOL [Concomitant]
     Active Substance: ACETAMINOPHEN
     Indication: Insomnia
     Dosage: 1 AS REQUIRED
     Route: 048
  15. ACETAMINOPHEN\CODEINE PHOSPHATE [Concomitant]
     Active Substance: ACETAMINOPHEN\CODEINE PHOSPHATE
     Indication: Arthralgia
     Dosage: 1 AS REQUIRED
     Route: 048
  16. LORIDIN [LORATADINE] [Concomitant]
     Indication: Rhinitis allergic
     Dosage: 1 AS REQUIRED
     Route: 048
  17. LORIDIN [LORATADINE] [Concomitant]
     Dosage: FREQUENCY TEXT: ON DAYS AS REQUIRED
     Route: 048
     Dates: start: 20160101
  18. DOCUSATE SODIUM\SENNOSIDES A AND B [Concomitant]
     Active Substance: DOCUSATE SODIUM\SENNOSIDES A AND B
     Indication: Constipation
     Dosage: 1 AS REQUIRED
     Route: 048
     Dates: start: 20210809
  19. DULCOLAX SP [Concomitant]
     Indication: Constipation
     Dosage: 1 AS REQUIRED
     Route: 048
  20. DULCOLAX SP [Concomitant]
     Dosage: FREQUENCY TEXT: 1 AS REQUIRED
     Route: 048
     Dates: start: 20210830
  21. LOPERAMIDE [Concomitant]
     Active Substance: LOPERAMIDE
     Indication: Prophylaxis against diarrhoea
     Dosage: 1 AS REQUIRED
     Route: 048
  22. LOPERAMIDE [Concomitant]
     Active Substance: LOPERAMIDE
     Dosage: FREQUENCY TEXT: 1 AS REQUIRED
     Route: 048
     Dates: start: 20210802
  23. METOCLOPRAMIDE SALF [Concomitant]
     Indication: Prophylaxis of nausea and vomiting
     Dosage: 1 AS REQUIRED
     Route: 048
  24. METOCLOPRAMIDE SALF [Concomitant]
     Dosage: FREQUENCY TEXT: 1 AS REQUIRED
     Route: 048
     Dates: start: 20210802
  25. ONDANSETRON HYDROCHLORIDE [Concomitant]
     Active Substance: ONDANSETRON HYDROCHLORIDE
     Indication: Nausea
     Dosage: 1 AS REQUIRED
     Route: 048
  26. SENEKOT [Concomitant]
     Indication: Constipation
     Dosage: 1 AS REQUIRED
     Route: 048
     Dates: start: 20210802
  27. VALACYCLOVIR HYDROCHLORIDE [Concomitant]
     Active Substance: VALACYCLOVIR HYDROCHLORIDE
     Indication: Antiviral prophylaxis
     Dosage: 1 IN 1 D
     Route: 048
  28. VALACYCLOVIR HYDROCHLORIDE [Concomitant]
     Active Substance: VALACYCLOVIR HYDROCHLORIDE
     Dosage: 500 MILLIGRAM
     Route: 048
     Dates: start: 20210802
  29. ESOMEPRAZOLE [Concomitant]
     Active Substance: ESOMEPRAZOLE
     Indication: Hiatus hernia
     Route: 048
     Dates: start: 20200101
  30. ESOMEPRAZOLE [Concomitant]
     Active Substance: ESOMEPRAZOLE
     Indication: Nausea
  31. ZOPICLONE [Concomitant]
     Active Substance: ZOPICLONE
     Indication: Arthralgia
     Dosage: FREQUENCY TEXT: ON DAYS AS REQUIRED
     Route: 048
     Dates: start: 19910101
  32. DOMPERIDONE [Concomitant]
     Active Substance: DOMPERIDONE
     Indication: Nausea
     Dosage: FREQUENCY TEXT: ON DAYS AS REQUIRED
     Route: 048
     Dates: start: 20210101
  33. FLUCONAZOLE [Concomitant]
     Active Substance: FLUCONAZOLE
     Indication: Neutrophil count decreased
     Route: 048
     Dates: start: 20210830
  34. COLOXYL AND SENNA [Concomitant]
     Indication: Constipation
     Dosage: FREQUENCY TEXT: 1 AS REQUIRED
     Route: 048
     Dates: start: 20210809
  35. MOVICOL [Concomitant]
     Active Substance: POLYETHYLENE GLYCOL 3350\POTASSIUM CHLORIDE\SODIUM BICARBONATE\SODIUM CHLORIDE
     Indication: Constipation
     Dosage: FREQUENCY TEXT: 1 AS REQUIRED?1 SACHET
     Route: 048
     Dates: start: 20210903
  36. SENEKOT [Concomitant]
     Indication: Constipation
     Dosage: FREQUENCY TEXT: ON DAYS AS REQUIRED
     Route: 048
     Dates: start: 20210802
  37. SENEKOT [Concomitant]
     Dosage: FREQUENCY TEXT: ON DAYS AS REQUIRED?500/30 MG
     Route: 048
     Dates: start: 20210515

REACTIONS (1)
  - Tonsillitis [Recovered/Resolved]

NARRATIVE: CASE EVENT DATE: 20210921
